FAERS Safety Report 9438730 (Version 1)
Quarter: 2013Q3

REPORT INFORMATION
  Report Type: Spontaneous
  Country: US (occurrence: US)
  Receive Date: 20130802
  Receipt Date: 20130802
  Transmission Date: 20140515
  Serious: Yes (Other)
  Sender: FDA-Public Use
  Company Number: US-MERCK-1307USA015013

PATIENT
  Age: 76 Year
  Sex: Male

DRUGS (4)
  1. ZOCOR [Suspect]
     Indication: BLOOD CHOLESTEROL INCREASED
     Dosage: 10 MG, QD
     Route: 048
  2. MEVACOR TABLET [Suspect]
     Route: 048
  3. CRESTOR [Suspect]
  4. ASPIRIN [Concomitant]

REACTIONS (3)
  - Vascular graft [Unknown]
  - Drug ineffective [Unknown]
  - Myalgia [Recovered/Resolved]
